FAERS Safety Report 6806014-6 (Version None)
Quarter: 2010Q2

REPORT INFORMATION
  Report Type: 
  Country: None (occurrence: None)
  Receive Date: 20100629
  Receipt Date: 20071210
  Transmission Date: 20101027
  Serious: Yes (Other)
  Sender: FDA-Public Use
  Company Number: US-PFIZER INC-2007089868

PATIENT
  Sex: Female

DRUGS (2)
  1. MEDROL [Suspect]
     Indication: ARTHROPOD BITE
     Dates: start: 20070904
  2. BENADRYL [Suspect]
     Indication: ARTHROPOD BITE
     Dates: start: 20070101, end: 20070101

REACTIONS (4)
  - CATARACT [None]
  - DEPRESSION [None]
  - FORMICATION [None]
  - TYPE 2 DIABETES MELLITUS [None]
